FAERS Safety Report 13248887 (Version 1)
Quarter: 2017Q1

REPORT INFORMATION
  Report Type: Spontaneous
  Country: US (occurrence: US)
  Receive Date: 20170218
  Receipt Date: 20170218
  Transmission Date: 20170428
  Serious: No
  Sender: FDA-Public Use
  Company Number: US-ALLERGAN-1635572US

PATIENT
  Age: 63 Year
  Sex: Female
  Weight: 63.49 kg

DRUGS (1)
  1. RESTASIS [Suspect]
     Active Substance: CYCLOSPORINE
     Indication: DRY EYE
     Dosage: 2 GTT, BID
     Dates: start: 20151229, end: 20160219

REACTIONS (4)
  - Wrong technique in product usage process [Unknown]
  - Incorrect product storage [Unknown]
  - Visual acuity reduced [Recovering/Resolving]
  - Contact lens intolerance [Recovering/Resolving]

NARRATIVE: CASE EVENT DATE: 20151229
